FAERS Safety Report 26036354 (Version 1)
Quarter: 2025Q4

REPORT INFORMATION
  Report Type: Spontaneous
  Country: CH (occurrence: CH)
  Receive Date: 20251112
  Receipt Date: 20251112
  Transmission Date: 20260117
  Serious: Yes (Hospitalization)
  Sender: PFIZER
  Company Number: None

PATIENT
  Age: 90 Year
  Sex: Male

DRUGS (4)
  1. SPIRONOLACTONE [Interacting]
     Active Substance: SPIRONOLACTONE
     Dosage: 25 MG, 1X/DAY
     Dates: start: 20250605, end: 20250611
  2. AMILORIDE [Interacting]
     Active Substance: AMILORIDE
     Dosage: 5 MG, 2X/DAY
     Dates: end: 20250604
  3. AMILORIDE [Interacting]
     Active Substance: AMILORIDE
     Dosage: 5 MG, 2X/DAY
     Dates: start: 20250606, end: 20250611
  4. ETHACRYNIC ACID [Concomitant]
     Active Substance: ETHACRYNIC ACID
     Dosage: 25 MG, 2X/DAY
     Dates: start: 20250607, end: 20250611

REACTIONS (4)
  - Acute kidney injury [Recovered/Resolved]
  - Hyperkalaemia [Recovered/Resolved]
  - Drug interaction [Recovered/Resolved]
  - Contraindicated product administered [Recovered/Resolved]

NARRATIVE: CASE EVENT DATE: 20250606
